FAERS Safety Report 18506284 (Version 1)
Quarter: 2020Q4

REPORT INFORMATION
  Report Type: Spontaneous
  Country: TR (occurrence: TR)
  Receive Date: 20201116
  Receipt Date: 20201116
  Transmission Date: 20210114
  Serious: Yes (Other)
  Sender: FDA-Public Use
  Company Number: TR-GILEAD-2020-0503575

PATIENT
  Age: 58 Year
  Sex: Female

DRUGS (1)
  1. VIREAD [Suspect]
     Active Substance: TENOFOVIR DISOPROXIL FUMARATE
     Indication: HEPATITIS B
     Dosage: 245 MG, QD
     Route: 065

REACTIONS (4)
  - Osteoporosis [Unknown]
  - Chronic kidney disease [Unknown]
  - Asthenia [Unknown]
  - Myalgia [Unknown]
